FAERS Safety Report 7064052 (Version 2)
Quarter: 2014Q2

REPORT INFORMATION
  Report Type: Spontaneous
  Country: US (occurrence: US)
  Receive Date: 20090727
  Receipt Date: 20140621
  Transmission Date: 20141212
  Serious: Yes (Other)
  Sender: FDA-Public Use
  Company Number: US-ALEXION-A200900542

PATIENT
  Sex: Female

DRUGS (5)
  1. SOLIRIS [Suspect]
     Indication: PAROXYSMAL NOCTURNAL HAEMOGLOBINURIA
     Dosage: 600 MG, QW
     Route: 042
     Dates: start: 20081016, end: 20081106
  2. SOLIRIS [Suspect]
     Dosage: 900 MG, Q2W
     Route: 042
     Dates: start: 20081113, end: 2008
  3. SOLIRIS [Suspect]
     Dosage: 900 MG, Q19D
     Route: 042
     Dates: start: 200812
  4. SOLIRIS [Suspect]
     Dosage: 600 MG, QW
     Route: 042
     Dates: start: 20090128, end: 200902
  5. SOLIRIS [Suspect]
     Dosage: UNK
     Route: 042

REACTIONS (6)
  - Haematocrit decreased [Unknown]
  - Haemoglobin decreased [Unknown]
  - Blood count abnormal [Unknown]
  - Malaise [Unknown]
  - Hepatic enzyme increased [Unknown]
  - Haemolysis [Unknown]
